FAERS Safety Report 8488899-3 (Version None)
Quarter: 2012Q2

REPORT INFORMATION
  Report Type: 
  Country: None (occurrence: None)
  Receive Date: 20120626
  Receipt Date: 20120615
  Transmission Date: 20120825
  Serious: Yes (Hospitalization)
  Sender: FDA-Public Use
  Company Number: 2012SP033117

PATIENT
  Age: 48 Year
  Sex: Male

DRUGS (3)
  1. PEG-INTRON [Suspect]
     Indication: PRODUCT USED FOR UNKNOWN INDICATION
  2. RIBAVIRIN [Suspect]
     Indication: PRODUCT USED FOR UNKNOWN INDICATION
  3. BOCEPREVIR (SCH-503034) [Suspect]
     Indication: HEPATITIS C
     Dosage: 800 MG;TID;PO
     Route: 048
     Dates: start: 20111006, end: 20120614

REACTIONS (1)
  - OEDEMATOUS PANCREATITIS [None]
